APPROVED DRUG PRODUCT: BUPIVACAINE HYDROCHLORIDE PRESERVATIVE FREE
Active Ingredient: BUPIVACAINE HYDROCHLORIDE
Strength: 0.75%
Dosage Form/Route: INJECTABLE;INJECTION
Application: A204842 | Product #003 | TE Code: AP
Applicant: HIKMA PHARMACEUTICALS
Approved: Feb 11, 2021 | RLD: No | RS: No | Type: RX